FAERS Safety Report 9959909 (Version 2)
Quarter: 2014Q2

REPORT INFORMATION
  Report Type: Report from Study
  Country: BR (occurrence: BR)
  Receive Date: 20140305
  Receipt Date: 20140619
  Transmission Date: 20141212
  Serious: Yes (Hospitalization, Other)
  Sender: FDA-Public Use
  Company Number: BR-ROCHE-1354907

PATIENT
  Age: 43 Year
  Sex: Female
  Weight: 44 kg

DRUGS (4)
  1. MABTHERA [Suspect]
     Indication: RHEUMATOID ARTHRITIS
     Dosage: LATEST INFUSION RECEIVED ON 01/OCT/2013
     Route: 042
     Dates: start: 20130924
  2. BOSENTAN [Concomitant]
  3. AMLODIPINE [Concomitant]
  4. PARACETAMOL [Concomitant]

REACTIONS (3)
  - Toe amputation [Unknown]
  - Scleroderma [Not Recovered/Not Resolved]
  - Weight decreased [Not Recovered/Not Resolved]
